FAERS Safety Report 8833820 (Version 1)
Quarter: 2012Q4

REPORT INFORMATION
  Report Type: 
  Country: DE (occurrence: US)
  Receive Date: 20121011
  Receipt Date: 20121011
  Transmission Date: 20130627
  Serious: Yes (Death, Other)
  Sender: FDA-Public Use
  Company Number: DE-RANBAXY-2010US-37563

PATIENT
  Sex: Female
  Weight: 77 kg

DRUGS (12)
  1. PANTOPRAZOLE [Suspect]
     Indication: GASTROOESOPHAGEAL REFLUX DISEASE
     Dosage: 40 mg, qd
     Route: 048
  2. XALATAN [Suspect]
     Indication: CORNEAL TRANSPLANT
     Dosage: 1 gtt, qd
     Route: 047
     Dates: start: 200901
  3. PRAVASTATIN [Concomitant]
     Indication: PRODUCT USED FOR UNKNOWN INDICATION
     Dosage: 20 mg, UNK
     Route: 048
  4. KLOR-CON [Concomitant]
     Indication: PRODUCT USED FOR UNKNOWN INDICATION
     Dosage: 10 mg, UNK
     Route: 048
  5. METOPROLOL [Concomitant]
     Indication: PRODUCT USED FOR UNKNOWN INDICATION
     Dosage: 50 mg, UNK
     Route: 048
  6. FUROSEMIDE [Concomitant]
     Indication: SWELLING
     Dosage: 20 mg, UNK
     Route: 048
  7. BETIMOL [Concomitant]
     Indication: PRODUCT USED FOR UNKNOWN INDICATION
     Dosage: 1 in 1 day
     Route: 047
  8. PREDNISOLONE [Concomitant]
     Indication: PRODUCT USED FOR UNKNOWN INDICATION
     Dosage: UNK
     Route: 047
  9. PLAVIX [Concomitant]
     Indication: CARDIOVASCULAR DISORDER
     Dosage: 75 mg, UNK
     Route: 048
  10. BENICAR [Concomitant]
     Indication: CARDIAC DISORDER
     Dosage: 20 mg, UNK
     Route: 048
  11. SINGULAIR [Concomitant]
     Indication: HYPERSENSITIVITY
     Dosage: 10 mg, UNK
     Route: 065
  12. COMBIVENT [Concomitant]
     Indication: CHRONIC OBSTRUCTIVE PULMONARY DISEASE
     Dosage: 4 in 1 day
     Route: 055

REACTIONS (1)
  - Dehydration [Not Recovered/Not Resolved]
